FAERS Safety Report 22711501 (Version 5)
Quarter: 2023Q4

REPORT INFORMATION
  Report Type: Spontaneous
  Country: US (occurrence: US)
  Receive Date: 20230717
  Receipt Date: 20231010
  Transmission Date: 20240110
  Serious: No
  Sender: FDA-Public Use
  Company Number: US-PFIZER INC-PV202300118293

PATIENT
  Age: 11 Year
  Sex: Female
  Weight: 17.234 kg

DRUGS (1)
  1. GENOTROPIN [Suspect]
     Active Substance: SOMATROPIN
     Indication: Growth disorder
     Dosage: 0.7 MG, 1X/DAY
     Dates: start: 202306

REACTIONS (3)
  - Device delivery system issue [Recovered/Resolved]
  - Wrong technique in device usage process [Unknown]
  - Emotional disorder [Unknown]
